FAERS Safety Report 17940530 (Version 2)
Quarter: 2020Q4

REPORT INFORMATION
  Report Type: Report from Study
  Country: IL (occurrence: IL)
  Receive Date: 20200625
  Receipt Date: 20201105
  Transmission Date: 20210113
  Serious: Yes (Other)
  Sender: FDA-Public Use
  Company Number: IL-SA-2017SA020400

PATIENT

DRUGS (1)
  1. ALEMTUZUMAB [Suspect]
     Active Substance: ALEMTUZUMAB
     Indication: MULTIPLE SCLEROSIS
     Dosage: 12 MG,UNK
     Route: 042
     Dates: start: 20170130

REACTIONS (4)
  - Trigeminal neuralgia [Unknown]
  - Confusional state [Recovered/Resolved]
  - Hallucination [Recovered/Resolved]
  - Facial pain [Unknown]

NARRATIVE: CASE EVENT DATE: 20170130
